FAERS Safety Report 13071787 (Version 2)
Quarter: 2017Q1

REPORT INFORMATION
  Report Type: Report from Study
  Country: US (occurrence: US)
  Receive Date: 20161229
  Receipt Date: 20170112
  Transmission Date: 20170428
  Serious: Yes (Hospitalization, Other)
  Sender: FDA-Public Use
  Company Number: US-GILEAD-2016-0250898

PATIENT
  Age: 72 Year
  Sex: Female
  Weight: 92.97 kg

DRUGS (11)
  1. AMBRISENTAN [Suspect]
     Active Substance: AMBRISENTAN
     Indication: SARCOIDOSIS
  2. AMBRISENTAN [Suspect]
     Active Substance: AMBRISENTAN
     Indication: PULMONARY ARTERIAL HYPERTENSION
     Dosage: 5 MG, QD
     Route: 048
     Dates: start: 20161201
  3. DILTIAZEM. [Concomitant]
     Active Substance: DILTIAZEM
  4. ALBUTEROL                          /00139501/ [Concomitant]
     Active Substance: ALBUTEROL
  5. REVATIO [Concomitant]
     Active Substance: SILDENAFIL CITRATE
  6. AMBRISENTAN [Suspect]
     Active Substance: AMBRISENTAN
     Indication: CONNECTIVE TISSUE DISORDER
  7. SILDENAFIL. [Concomitant]
     Active Substance: SILDENAFIL
  8. QVAR [Concomitant]
     Active Substance: BECLOMETHASONE DIPROPIONATE
  9. AMBRISENTAN [Suspect]
     Active Substance: AMBRISENTAN
     Indication: HEART DISEASE CONGENITAL
     Dosage: 10 MG, UNK
     Route: 048
     Dates: start: 20161130
  10. LORAZEPAM. [Concomitant]
     Active Substance: LORAZEPAM
  11. LIPITOR [Concomitant]
     Active Substance: ATORVASTATIN CALCIUM

REACTIONS (5)
  - Peripheral swelling [Unknown]
  - Oropharyngeal pain [Unknown]
  - Wheezing [Unknown]
  - Dyspnoea exertional [Unknown]
  - Productive cough [Unknown]

NARRATIVE: CASE EVENT DATE: 20161221
